FAERS Safety Report 20328705 (Version 2)
Quarter: 2022Q1

REPORT INFORMATION
  Report Type: Report from Study
  Country: CO (occurrence: CO)
  Receive Date: 20220112
  Receipt Date: 20220119
  Transmission Date: 20220423
  Serious: Yes (Other)
  Sender: FDA-Public Use
  Company Number: CO-NOVARTISPH-NVSC2021CO244901

PATIENT
  Sex: Male
  Weight: 72 kg

DRUGS (3)
  1. LUCENTIS [Suspect]
     Active Substance: RANIBIZUMAB
     Indication: Age-related macular degeneration
     Dosage: UNK UNK, QMO
     Route: 047
  2. CARVEDILOL [Suspect]
     Active Substance: CARVEDILOL
     Indication: Cardiac disorder
     Dosage: UNK UNK, QD (STARTED 5 YEARS AGO)
     Route: 048
  3. ASPIRIN [Concomitant]
     Active Substance: ASPIRIN
     Indication: Coagulopathy
     Dosage: 85 MG, QD (STARTED 5 YEARS AGO)
     Route: 048

REACTIONS (6)
  - Age-related macular degeneration [Unknown]
  - Disease progression [Unknown]
  - Eye disorder [Unknown]
  - Visual impairment [Unknown]
  - Vision blurred [Unknown]
  - Product availability issue [Unknown]
